FAERS Safety Report 23090595 (Version 1)
Quarter: 2023Q4

REPORT INFORMATION
  Report Type: Spontaneous
  Country: US (occurrence: None)
  Receive Date: 20231018
  Receipt Date: 20231018
  Transmission Date: 20240109
  Serious: Yes (Hospitalization)
  Sender: FDA-Public Use
  Company Number: None

PATIENT
  Age: 82 Year
  Sex: Female
  Weight: 70.3 kg

DRUGS (2)
  1. FLUDARABINE [Suspect]
     Active Substance: FLUDARABINE PHOSPHATE
  2. CYCLOPHOSPHAMIDE [Suspect]
     Active Substance: CYCLOPHOSPHAMIDE

REACTIONS (12)
  - Malnutrition [None]
  - Deep vein thrombosis [None]
  - Delirium [None]
  - Subcutaneous abscess [None]
  - Staphylococcal infection [None]
  - Cytomegalovirus viraemia [None]
  - Encephalopathy [None]
  - Dysphagia [None]
  - Tremor [None]
  - Neurotoxicity [None]
  - Lymphocyte count decreased [None]
  - Cytokine release syndrome [None]

NARRATIVE: CASE EVENT DATE: 20230817
